FAERS Safety Report 5765501-2 (Version None)
Quarter: 2008Q2

REPORT INFORMATION
  Report Type: 
  Country: None (occurrence: None)
  Receive Date: 20080611
  Receipt Date: 20080605
  Transmission Date: 20081010
  Serious: Yes (Other)
  Sender: FDA-Public Use
  Company Number: B0524508A

PATIENT
  Sex: Male

DRUGS (5)
  1. AVANDIA [Suspect]
     Indication: DRUG USE FOR UNKNOWN INDICATION
     Route: 065
  2. DIABEX [Concomitant]
     Route: 065
  3. METOPROLOL [Concomitant]
     Route: 065
  4. RAMIPRIL [Concomitant]
     Route: 065
  5. FUROSEMIDE [Concomitant]
     Route: 065

REACTIONS (1)
  - ATRIAL FIBRILLATION [None]
